FAERS Safety Report 9635960 (Version 2)
Quarter: 2013Q4

REPORT INFORMATION
  Report Type: Spontaneous
  Country: US (occurrence: US)
  Receive Date: 20131021
  Receipt Date: 20131021
  Transmission Date: 20140711
  Serious: No
  Sender: FDA-Public Use
  Company Number: US-PURDUE-USA-2013-0103874

PATIENT
  Age: 54 Year
  Sex: Male
  Weight: 99.77 kg

DRUGS (4)
  1. BUTRANS [Suspect]
     Indication: PAIN
     Dosage: UNKNOWN
     Route: 062
     Dates: start: 201304
  2. BUTRANS [Suspect]
     Indication: NECK PAIN
  3. BUTRANS [Suspect]
     Indication: BACK PAIN
  4. TRAMADOL (SIMILAR TO NDA 21-745) [Concomitant]
     Indication: PAIN
     Dosage: 50 MG, TID
     Route: 048

REACTIONS (13)
  - Haemorrhoidal haemorrhage [Unknown]
  - Heart rate irregular [Unknown]
  - Lethargy [Unknown]
  - Fear [Unknown]
  - Fatigue [Unknown]
  - Abdominal discomfort [Unknown]
  - Constipation [Unknown]
  - Hyperhidrosis [Unknown]
  - Drug ineffective [Unknown]
  - Chest pain [Unknown]
  - Tremor [Unknown]
  - Asthenia [Unknown]
  - Dizziness [Unknown]
